FAERS Safety Report 22620468 (Version 2)
Quarter: 2023Q2

REPORT INFORMATION
  Report Type: Spontaneous
  Country: US (occurrence: US)
  Receive Date: 20230620
  Receipt Date: 20230626
  Transmission Date: 20230722
  Serious: Yes (Hospitalization, Other)
  Sender: FDA-Public Use
  Company Number: US-PFIZER INC-202300223784

PATIENT
  Age: 59 Year
  Sex: Male

DRUGS (4)
  1. AMINOCAPROIC ACID [Suspect]
     Active Substance: AMINOCAPROIC ACID
     Indication: Cardiac failure congestive
     Dosage: 100 MG/KG OVER 45 MINUTES AS A LOADING DOSE
  2. AMINOCAPROIC ACID [Suspect]
     Active Substance: AMINOCAPROIC ACID
     Indication: Cardiopulmonary bypass
     Dosage: INFUSION OF 10 MG/KG/HR
  3. HEPARIN [Concomitant]
     Active Substance: HEPARIN SODIUM
     Dosage: 300 U/KG
  4. HEPARIN [Concomitant]
     Active Substance: HEPARIN SODIUM
     Dosage: 10000 U

REACTIONS (1)
  - Disseminated intravascular coagulation [Recovered/Resolved]
